FAERS Safety Report 6524137-6 (Version None)
Quarter: 2009Q4

REPORT INFORMATION
  Report Type: 
  Country: None (occurrence: None)
  Receive Date: 20091231
  Receipt Date: 20090608
  Transmission Date: 20100525
  Serious: No
  Sender: FDA-Public Use
  Company Number: US-BAYER-200915266NA

PATIENT

DRUGS (2)
  1. ULTRAVIST (PHARMACY BULK) [Suspect]
     Indication: DRUG USE FOR UNKNOWN INDICATION
     Dosage: POWER INJECTOR USED, ADMINISTERED BETWEEN 01-JUL-2008 AND 07-AUG-2008
  2. E-Z-EM READI-CAT 2 [Concomitant]
     Route: 048

REACTIONS (6)
  - NAUSEA [None]
  - PRURITUS [None]
  - SNEEZING [None]
  - THROAT TIGHTNESS [None]
  - URTICARIA [None]
  - VOMITING [None]
